FAERS Safety Report 15806547 (Version 2)
Quarter: 2019Q1

REPORT INFORMATION
  Report Type: Spontaneous
  Country: JP (occurrence: JP)
  Receive Date: 20190110
  Receipt Date: 20190311
  Transmission Date: 20190417
  Serious: Yes (Death, Hospitalization, Other)
  Sender: FDA-Public Use
  Company Number: JP-BRISTOL-MYERS SQUIBB COMPANY-BMS-2018-078156

PATIENT
  Age: 70 Year
  Sex: Male
  Weight: 52.1 kg

DRUGS (1)
  1. OPDIVO [Suspect]
     Active Substance: NIVOLUMAB
     Indication: GASTRIC CANCER
     Dosage: 140 MG PER DAY
     Route: 041
     Dates: start: 20180621, end: 20180705

REACTIONS (3)
  - Hepatic function abnormal [Not Recovered/Not Resolved]
  - Malignant neoplasm progression [Fatal]
  - Pneumothorax [Recovered/Resolved]

NARRATIVE: CASE EVENT DATE: 20180712
